FAERS Safety Report 25847023 (Version 1)
Quarter: 2025Q3

REPORT INFORMATION
  Report Type: Report from Study
  Country: EU (occurrence: EU)
  Receive Date: 20250925
  Receipt Date: 20250925
  Transmission Date: 20251020
  Serious: Yes (Other)
  Sender: AUROBINDO
  Company Number: EU-DialogSolutions-SAAVPROD-PI818039-C1

PATIENT
  Age: 35 Year
  Sex: Female

DRUGS (1)
  1. TERIFLUNOMIDE [Suspect]
     Active Substance: TERIFLUNOMIDE
     Indication: Relapsing-remitting multiple sclerosis
     Route: 065

REACTIONS (3)
  - Polyneuropathy [Unknown]
  - Peripheral sensory neuropathy [Unknown]
  - Axonal neuropathy [Unknown]
